FAERS Safety Report 25531396 (Version 2)
Quarter: 2025Q4

REPORT INFORMATION
  Report Type: Report from Study
  Country: CA (occurrence: CA)
  Receive Date: 20250708
  Receipt Date: 20251105
  Transmission Date: 20260119
  Serious: Yes (Hospitalization)
  Sender: ABBVIE
  Company Number: CA-ABBVIE-6360793

PATIENT
  Age: 59 Year
  Sex: Female

DRUGS (1)
  1. SKYRIZI [Suspect]
     Active Substance: RISANKIZUMAB-RZAA
     Indication: Psoriasis
     Dosage: 1 DOSE
     Route: 058
     Dates: start: 20250614, end: 20250614

REACTIONS (4)
  - Gastrointestinal infection [Unknown]
  - Hypertension [Unknown]
  - Primary immunodeficiency syndrome [Unknown]
  - Asthma [Unknown]
